FAERS Safety Report 15696260 (Version 4)
Quarter: 2020Q1

REPORT INFORMATION
  Report Type: Spontaneous
  Country: US (occurrence: US)
  Receive Date: 20181206
  Receipt Date: 20200323
  Transmission Date: 20200409
  Serious: Yes (Other)
  Sender: FDA-Public Use
  Company Number: PHEH2018US051612

PATIENT
  Sex: Male

DRUGS (1)
  1. TASIGNA [Suspect]
     Active Substance: NILOTINIB
     Indication: CHRONIC MYELOID LEUKAEMIA
     Dosage: 400 MG, BID
     Route: 048
     Dates: start: 20130905, end: 201612

REACTIONS (21)
  - Osteomyelitis acute [Unknown]
  - Deafness [Unknown]
  - Peripheral arterial occlusive disease [Unknown]
  - Iron deficiency anaemia [Unknown]
  - Type 2 diabetes mellitus [Unknown]
  - Injury [Unknown]
  - Peripheral ischaemia [Unknown]
  - Thrombocytopenia [Unknown]
  - Wound [Unknown]
  - Oedema [Unknown]
  - Anxiety [Unknown]
  - Diabetes mellitus [Unknown]
  - Pneumonia [Unknown]
  - Pollakiuria [Unknown]
  - Chronic kidney disease [Unknown]
  - Hypothyroidism [Unknown]
  - Peripheral vascular disorder [Unknown]
  - Intermittent claudication [Unknown]
  - Skin ulcer [Unknown]
  - Hyperlipidaemia [Unknown]
  - Arthralgia [Unknown]
